FAERS Safety Report 18810405 (Version 3)
Quarter: 2021Q1

REPORT INFORMATION
  Report Type: Spontaneous
  Country: JP (occurrence: JP)
  Receive Date: 20210129
  Receipt Date: 20210301
  Transmission Date: 20210419
  Serious: Yes (Other)
  Sender: FDA-Public Use
  Company Number: JP-PFIZER INC-2021059469

PATIENT
  Age: 79 Year
  Sex: Female
  Weight: 43.9 kg

DRUGS (9)
  1. TRAMAL [Concomitant]
     Active Substance: TRAMADOL
     Dosage: 50 MG, 4X/DAY
     Route: 048
     Dates: start: 20201212
  2. LYRICA [Concomitant]
     Active Substance: PREGABALIN
     Dosage: 50 MG, 1X/DAY
     Route: 048
     Dates: start: 20201212
  3. SENNOSIDE [SENNOSIDE A+B] [Concomitant]
     Active Substance: SENNOSIDES A AND B
     Dosage: 12 MG, 1X/DAY
     Route: 048
     Dates: start: 20201212
  4. NOVAMIN [Concomitant]
     Dosage: 5 MG, 4X/DAY
     Route: 048
     Dates: start: 20201212, end: 20201216
  5. CELECOXIB 100MG PFIZER [Suspect]
     Active Substance: CELECOXIB
     Indication: ANALGESIC THERAPY
     Dosage: 100 MG, 2X/DAY
     Route: 048
     Dates: start: 20201212, end: 20201228
  6. NEXIUM [Concomitant]
     Active Substance: ESOMEPRAZOLE MAGNESIUM
     Dosage: 20 MG, 1X/DAY
     Route: 048
     Dates: start: 20201212
  7. ROSUVASTATIN. [Concomitant]
     Active Substance: ROSUVASTATIN
     Dosage: 2.5 MG, ALTERNATE DAY
     Route: 048
  8. MAGMITT [Concomitant]
     Active Substance: MAGNESIUM OXIDE
     Dosage: 330 MG, 1X/DAY
     Route: 048
     Dates: start: 20201214
  9. LIXIANA [Concomitant]
     Active Substance: EDOXABAN TOSYLATE
     Dosage: 15 MG, 1X/DAY
     Route: 048
     Dates: start: 20201212

REACTIONS (2)
  - Toxic skin eruption [Recovered/Resolved]
  - Haemoglobin decreased [Recovered/Resolved]

NARRATIVE: CASE EVENT DATE: 20201222
